FAERS Safety Report 8092108-7 (Version None)
Quarter: 2011Q4

REPORT INFORMATION
  Report Type: 
  Country: None (occurrence: None)
  Receive Date: 20111221
  Receipt Date: 20110830
  Transmission Date: 20120403
  Serious: Yes (Other)
  Sender: FDA-Public Use
  Company Number: PHHY2011US44513

PATIENT
  Age: 74 Year
  Sex: Male
  Weight: 124 kg

DRUGS (15)
  1. LEVOTHROID (LEVOTHYROXINE SODIUM)TABLET [Concomitant]
  2. ACETAMINOPHEN (PARACETAMOL) TABLET [Concomitant]
  3. PROCRIT [Concomitant]
  4. ACETYLCYSTEINE (ACETYLCYSTEINE) INHALER [Concomitant]
  5. ASPIRIN [Concomitant]
  6. ALLOPURINOL [Concomitant]
  7. FLAGYL (METRONIDAZOLE BENZOATE) TABLET [Concomitant]
  8. GLUCOSAMINDE (GLUCOSAMINE) [Concomitant]
  9. OMEPRAZOLE [Concomitant]
  10. TOPRAL (SULTOPRIDE) TABLET [Concomitant]
  11. PRAVASTATIN (PRAVASTATIN) TABLET [Concomitant]
  12. GABAPENTIN [Concomitant]
  13. PREDNISONE TAB [Concomitant]
  14. EXJADE [Suspect]
     Indication: NEPHROGENIC ANAEMIA
     Dosage: 500 MG, DAILY, ORAL
     Route: 048
     Dates: start: 20110401, end: 20110519
  15. FOLIC ACID [Concomitant]

REACTIONS (7)
  - BLOOD POTASSIUM INCREASED [None]
  - BLOOD CREATININE INCREASED [None]
  - BLOOD UREA INCREASED [None]
  - BLOOD CALCIUM INCREASED [None]
  - LIVER DISORDER [None]
  - GLOMERULAR FILTRATION RATE DECREASED [None]
  - RENAL IMPAIRMENT [None]
